FAERS Safety Report 8025883-8 (Version None)
Quarter: 2012Q1

REPORT INFORMATION
  Report Type: 
  Country: None (occurrence: None)
  Receive Date: 20120105
  Receipt Date: 20111228
  Transmission Date: 20120608
  Serious: Yes (Other)
  Sender: FDA-Public Use
  Company Number: IN-ROCHE-1026444

PATIENT

DRUGS (2)
  1. TAMIFLU [Suspect]
     Indication: ANTIVIRAL PROPHYLAXIS
  2. TAMIFLU [Suspect]
     Indication: H1N1 INFLUENZA

REACTIONS (4)
  - DEPRESSED MOOD [None]
  - PSYCHIATRIC SYMPTOM [None]
  - SEDATION [None]
  - GASTRITIS [None]
